FAERS Safety Report 24635850 (Version 1)
Quarter: 2024Q4

REPORT INFORMATION
  Report Type: Spontaneous
  Country: US (occurrence: None)
  Receive Date: 20241118
  Receipt Date: 20241118
  Transmission Date: 20250115
  Serious: Yes (Hospitalization)
  Sender: Public
  Company Number: None

PATIENT
  Sex: Male

DRUGS (8)
  1. LENALIDOMIDE [Suspect]
     Active Substance: LENALIDOMIDE
     Indication: Plasma cell myeloma
     Route: 048
     Dates: start: 20240223
  2. DIPHEN/ATROP TAB 2.5MG [Concomitant]
  3. IBU TAB 600MG [Concomitant]
  4. LEVOCETIRIZI TAB 5MG [Concomitant]
  5. METOPROLOL SUCCINATE [Concomitant]
     Active Substance: METOPROLOL SUCCINATE
  6. PANTOPRAZOLE SODIUM [Concomitant]
     Active Substance: PANTOPRAZOLE SODIUM
  7. POT CL MICRO TAB 20MEO ER [Concomitant]
  8. REVLIMID [Concomitant]
     Active Substance: LENALIDOMIDE

REACTIONS (5)
  - Urinary tract infection [None]
  - Hypovitaminosis [None]
  - Diarrhoea [None]
  - Brain fog [None]
  - Memory impairment [None]
